FAERS Safety Report 12350773 (Version 1)
Quarter: 2016Q2

REPORT INFORMATION
  Report Type: Spontaneous
  Country: US (occurrence: None)
  Receive Date: 20160509
  Receipt Date: 20160509
  Transmission Date: 20160815
  Serious: No
  Sender: FDA-Public Use
  Company Number: None

PATIENT
  Age: 33 Year
  Sex: Female

DRUGS (1)
  1. HUMIRA [Suspect]
     Active Substance: ADALIMUMAB
     Indication: PSORIASIS
     Dosage: 40MG EVERY 2 WEEKS
     Route: 058
     Dates: start: 20160201

REACTIONS (4)
  - Pruritus generalised [None]
  - Injection site pruritus [None]
  - Rash [None]
  - Injection site rash [None]

NARRATIVE: CASE EVENT DATE: 20160505
